FAERS Safety Report 7141424-1 (Version None)
Quarter: 2010Q4

REPORT INFORMATION
  Report Type: 
  Country: None (occurrence: None)
  Receive Date: 20101207
  Receipt Date: 20101201
  Transmission Date: 20110411
  Serious: Yes (Hospitalization, Other)
  Sender: FDA-Public Use
  Company Number: US-ELI_LILLY_AND_COMPANY-US200902001068

PATIENT
  Sex: Female
  Weight: 97.506 kg

DRUGS (11)
  1. BYETTA [Suspect]
     Dosage: 10 UG, UNKNOWN
     Route: 058
     Dates: start: 20060101, end: 20081101
  2. BYETTA [Suspect]
     Dosage: 5 UG, UNK
     Route: 058
     Dates: end: 20081101
  3. METFORMIN [Concomitant]
     Indication: DIABETES MELLITUS
     Dates: start: 20050101
  4. GLIMEPIRIDE [Concomitant]
     Indication: DIABETES MELLITUS
  5. SYNTHROID [Concomitant]
     Dosage: 0.112 MG, DAILY (1/D)
     Route: 048
  6. DIOVAN HCT [Concomitant]
     Dosage: UNK, DAILY (1/D)
     Route: 048
  7. AMBIEN [Concomitant]
     Dosage: UNK, AS NEEDED
  8. ASPIRIN [Concomitant]
  9. CELEBREX [Concomitant]
  10. OMEPRAZOLE [Concomitant]
     Dosage: 20 MG, UNK
     Route: 048
  11. LEVOFLOXACIN [Concomitant]
     Route: 042
     Dates: start: 20081103, end: 20081105

REACTIONS (5)
  - CHOLECYSTITIS [None]
  - OFF LABEL USE [None]
  - PANCREATITIS ACUTE [None]
  - THYROID ADENOMA [None]
  - THYROID CANCER [None]
